FAERS Safety Report 25567072 (Version 1)
Quarter: 2025Q3

REPORT INFORMATION
  Report Type: Spontaneous
  Country: US (occurrence: None)
  Receive Date: 20250715
  Receipt Date: 20250715
  Transmission Date: 20251020
  Serious: Yes (Congenital Anomaly)
  Sender: FDA-CTU
  Company Number: None

PATIENT
  Age: 26 Year
  Sex: Female
  Weight: 163 kg

DRUGS (5)
  1. TERIFLUNOMIDE [Suspect]
     Active Substance: TERIFLUNOMIDE
     Indication: Multiple sclerosis
     Dosage: FREQUENCY : DAILY;?
     Route: 048
     Dates: start: 20250326, end: 20250528
  2. AMITRIPTYLINE [Concomitant]
     Active Substance: AMITRIPTYLINE
  3. WEGOVY [Concomitant]
     Active Substance: SEMAGLUTIDE
  4. SERTRALINE [Concomitant]
     Active Substance: SERTRALINE HYDROCHLORIDE
  5. CHOLESTYRAMINE [Suspect]
     Active Substance: CHOLESTYRAMINE

REACTIONS (2)
  - Pregnancy test positive [None]
  - Anembryonic gestation [None]

NARRATIVE: CASE EVENT DATE: 20250611
